FAERS Safety Report 5055376-1 (Version None)
Quarter: 2006Q2

REPORT INFORMATION
  Report Type: 
  Country: None (occurrence: None)
  Receive Date: 20060616
  Receipt Date: 20060425
  Transmission Date: 20061013
  Serious: No
  Sender: FDA-Public Use
  Company Number: 2006US000449

PATIENT
  Age: 68 Year
  Sex: Female
  Weight: 74.8 kg

DRUGS (4)
  1. VESICARE [Suspect]
     Indication: DRUG USE FOR UNKNOWN INDICATION
     Dosage: SEE IMAGE
     Route: 048
  2. SYNTHROID [Concomitant]
  3. WELLBUTRIN [Concomitant]
  4. PEMPRO (PREMPRO) [Concomitant]

REACTIONS (2)
  - DRY MOUTH [None]
  - RASH GENERALISED [None]
